FAERS Safety Report 26179337 (Version 2)
Quarter: 2025Q4

REPORT INFORMATION
  Report Type: Report from Study
  Country: US (occurrence: US)
  Receive Date: 20251219
  Receipt Date: 20251224
  Transmission Date: 20260118
  Serious: Yes (Death)
  Sender: JOHNSON AND JOHNSON
  Company Number: US-JNJFOC-20251225084

PATIENT
  Age: 69 Year
  Sex: Female

DRUGS (1)
  1. CILTACABTAGENE AUTOLEUCEL [Suspect]
     Active Substance: CILTACABTAGENE AUTOLEUCEL
     Indication: Plasma cell myeloma
     Dosage: TOTAL NUMBER OF CELLS ADMINISTERED - 5.34, TOTAL CELLS EXPONENT VALUE - 7, NUMBER OF PRIOR LINES PRIOR TO CARVYKTI - 8

REACTIONS (2)
  - Plasma cell myeloma [Fatal]
  - COVID-19 [Fatal]
